FAERS Safety Report 10211339 (Version 2)
Quarter: 2014Q2

REPORT INFORMATION
  Report Type: Spontaneous
  Country: JP (occurrence: JP)
  Receive Date: 20140602
  Receipt Date: 20140610
  Transmission Date: 20141212
  Serious: Yes (Hospitalization)
  Sender: FDA-Public Use
  Company Number: JP-GLAXOSMITHKLINE-B0998481A

PATIENT
  Age: 22 Year
  Sex: Female

DRUGS (5)
  1. LAMICTAL [Suspect]
     Indication: BIPOLAR DISORDER
     Dosage: 12.5MG TWICE PER DAY
     Route: 048
     Dates: start: 20140307, end: 20140318
  2. LAMICTAL [Suspect]
     Indication: BIPOLAR DISORDER
     Dosage: 25MG TWICE PER DAY
     Route: 048
     Dates: start: 20140319, end: 20140325
  3. LAMICTAL [Suspect]
     Indication: BIPOLAR DISORDER
     Dosage: 37.5MG TWICE PER DAY
     Route: 048
     Dates: start: 20140326
  4. SEROQUEL [Concomitant]
     Route: 048
     Dates: start: 20131203, end: 20140412
  5. MAGLAX [Concomitant]
     Dosage: 330MG TWICE PER DAY
     Route: 048
     Dates: start: 20131203

REACTIONS (7)
  - Drug reaction with eosinophilia and systemic symptoms [Recovered/Resolved]
  - Restlessness [Unknown]
  - Psychiatric symptom [Unknown]
  - Skin disorder [Recovering/Resolving]
  - Mental disorder [Unknown]
  - Rash generalised [Recovered/Resolved]
  - Oral disorder [Unknown]
